FAERS Safety Report 13695218 (Version 2)
Quarter: 2017Q3

REPORT INFORMATION
  Report Type: Report from Study
  Country: AU (occurrence: AU)
  Receive Date: 20170627
  Receipt Date: 20170811
  Transmission Date: 20171127
  Serious: Yes (Other)
  Sender: FDA-Public Use
  Company Number: AU-REGENERON PHARMACEUTICALS, INC.-2017-17575

PATIENT

DRUGS (1)
  1. EYLEA [Suspect]
     Active Substance: AFLIBERCEPT
     Indication: NEOVASCULAR AGE-RELATED MACULAR DEGENERATION
     Dosage: ONCE
     Route: 031
     Dates: start: 20160201, end: 20160201

REACTIONS (4)
  - Atrial fibrillation [Not Recovered/Not Resolved]
  - Macular oedema [Unknown]
  - Inappropriate schedule of drug administration [Unknown]
  - Injection site erythema [Recovered/Resolved]
